FAERS Safety Report 21256678 (Version 3)
Quarter: 2023Q2

REPORT INFORMATION
  Report Type: Report from Study
  Country: US (occurrence: US)
  Receive Date: 20220826
  Receipt Date: 20230427
  Transmission Date: 20230722
  Serious: Yes (Death, Other)
  Sender: FDA-Public Use
  Company Number: US-ACADIA PHARMACEUTICALS INC.-ACA-2022-PIM-002626

PATIENT
  Age: 63 Year
  Sex: Male

DRUGS (14)
  1. NUPLAZID [Suspect]
     Active Substance: PIMAVANSERIN TARTRATE
     Indication: Parkinson^s disease psychosis
     Dosage: 34 MILLIGRAM, QD
     Route: 048
     Dates: start: 20200706
  2. NUPLAZID [Suspect]
     Active Substance: PIMAVANSERIN TARTRATE
     Indication: Parkinson^s disease
     Dosage: 34 MILLIGRAM, QD
     Route: 048
     Dates: start: 202102, end: 20230324
  3. HYDROCORTISONE [Concomitant]
     Active Substance: HYDROCORTISONE
  4. FLUOCINONIDE [Concomitant]
     Active Substance: FLUOCINONIDE
  5. KETOCONAZOLE [Concomitant]
     Active Substance: KETOCONAZOLE
  6. DONEPEZIL [Concomitant]
     Active Substance: DONEPEZIL
  7. MELATONIN [Concomitant]
     Active Substance: MELATONIN
  8. FINASTERIDE [Concomitant]
     Active Substance: FINASTERIDE
  9. CLONAZEPAM [Concomitant]
     Active Substance: CLONAZEPAM
  10. CARBIDOPA\LEVODOPA [Concomitant]
     Active Substance: CARBIDOPA\LEVODOPA
  11. CHOLECALCIFEROL [Concomitant]
     Active Substance: CHOLECALCIFEROL
  12. QUETIAPINE [Concomitant]
     Active Substance: QUETIAPINE
  13. VITAMIN B COMPLEX [Concomitant]
     Active Substance: CYANOCOBALAMIN\DEXPANTHENOL\NIACINAMIDE\PYRIDOXINE HYDROCHLORIDE\RIBOFLAVIN 5^-PHOSPHATE SODIUM\THIA
     Indication: Vitamin supplementation
  14. BIOTIN [Concomitant]
     Active Substance: BIOTIN

REACTIONS (4)
  - Parkinson^s disease [Recovered/Resolved]
  - COVID-19 [Recovered/Resolved]
  - SARS-CoV-2 test positive [Unknown]
  - Hallucination [Unknown]

NARRATIVE: CASE EVENT DATE: 20200701
